FAERS Safety Report 8158702-X (Version None)
Quarter: 2012Q1

REPORT INFORMATION
  Report Type: 
  Country: None (occurrence: None)
  Receive Date: 20120217
  Receipt Date: 20120210
  Transmission Date: 20120608
  Serious: No
  Sender: FDA-Public Use
  Company Number: 2012SP008229

PATIENT
  Sex: Female

DRUGS (1)
  1. SYCREST (ASENAPINE /05706901/) [Suspect]
     Indication: BIPOLAR I DISORDER
     Dosage: 5 MG;BID;SL
     Route: 060
     Dates: start: 20120201, end: 20120201

REACTIONS (1)
  - RASH [None]
